APPROVED DRUG PRODUCT: GLYCOPYRROLATE
Active Ingredient: GLYCOPYRROLATE
Strength: 1MG/5ML
Dosage Form/Route: SOLUTION;ORAL
Application: A212467 | Product #001 | TE Code: AA
Applicant: SUVEN PHARMACEUTICALS LTD
Approved: Jul 5, 2022 | RLD: No | RS: No | Type: RX